FAERS Safety Report 6797136-7 (Version None)
Quarter: 2010Q2

REPORT INFORMATION
  Report Type: 
  Country: None (occurrence: None)
  Receive Date: 20100623
  Receipt Date: 20100612
  Transmission Date: 20101027
  Serious: Yes (Death, Other)
  Sender: FDA-Public Use
  Company Number: 2010AP001222

PATIENT
  Age: 27 Year
  Sex: Female

DRUGS (9)
  1. TIZANIDINE HYDROCHLORIDE [Suspect]
  2. AZITHROMYCIN [Suspect]
     Indication: UPPER RESPIRATORY TRACT INFECTION
  3. BUPROPION HCL [Concomitant]
  4. TRAZODONE HYDROCHLORIDE [Concomitant]
  5. ZOLPIDEM [Concomitant]
  6. FEXOFENADINE [Concomitant]
  7. TRAMADOL HCL [Concomitant]
  8. IBUPROFEN [Concomitant]
  9. SUMATRIPTAN SUCCINATE [Concomitant]

REACTIONS (7)
  - ANOXIC ENCEPHALOPATHY [None]
  - CARDIAC ARREST [None]
  - COMA [None]
  - DRUG INTERACTION [None]
  - SUDDEN DEATH [None]
  - TORSADE DE POINTES [None]
  - VENTRICULAR FIBRILLATION [None]
